FAERS Safety Report 25016464 (Version 2)
Quarter: 2025Q1

REPORT INFORMATION
  Report Type: Report from Study
  Country: US (occurrence: US)
  Receive Date: 20250227
  Receipt Date: 20250320
  Transmission Date: 20250409
  Serious: Yes (Other)
  Sender: CSL BEHRING
  Company Number: US-BEH-2025196869

PATIENT
  Age: 52 Year
  Sex: Female
  Weight: 69.5 kg

DRUGS (2)
  1. HIZENTRA [Suspect]
     Active Substance: HUMAN IMMUNOGLOBULIN G
     Indication: Product used for unknown indication
     Route: 065
  2. HIZENTRA [Suspect]
     Active Substance: HUMAN IMMUNOGLOBULIN G
     Route: 065

REACTIONS (5)
  - Cerebrovascular accident [Unknown]
  - COVID-19 [Unknown]
  - Fatigue [Unknown]
  - Swelling face [Unknown]
  - Abdominal distension [Unknown]
